FAERS Safety Report 25039943 (Version 1)
Quarter: 2025Q1

REPORT INFORMATION
  Report Type: Spontaneous
  Country: TW (occurrence: TW)
  Receive Date: 20250305
  Receipt Date: 20250305
  Transmission Date: 20250409
  Serious: Yes (Life-Threatening, Hospitalization, Other)
  Sender: Norvium Bioscience
  Company Number: TW-Norvium Bioscience LLC-079923

PATIENT
  Age: 55 Year
  Sex: Female

DRUGS (6)
  1. LITHIUM CARBONATE [Interacting]
     Active Substance: LITHIUM CARBONATE
     Indication: Psychiatric symptom
  2. TELMISARTAN [Interacting]
     Active Substance: TELMISARTAN
     Indication: Hypertension
  3. AMLODIPINE [Concomitant]
     Active Substance: AMLODIPINE BESYLATE
     Indication: Hypertension
  4. VALPROATE SODIUM [Concomitant]
     Active Substance: VALPROATE SODIUM
     Indication: Psychotic disorder
  5. QUETIAPINE [Concomitant]
     Active Substance: QUETIAPINE
     Indication: Psychotic disorder
  6. ESTAZOLAM [Concomitant]
     Active Substance: ESTAZOLAM
     Indication: Psychotic disorder

REACTIONS (4)
  - Atrioventricular block complete [Recovering/Resolving]
  - Toxicity to various agents [Recovered/Resolved]
  - Sinus node dysfunction [Recovered/Resolved]
  - Drug interaction [Recovered/Resolved]
